FAERS Safety Report 11719650 (Version 1)
Quarter: 2015Q4

REPORT INFORMATION
  Report Type: Spontaneous
  Country: US (occurrence: None)
  Receive Date: 20151109
  Receipt Date: 20151109
  Transmission Date: 20160304
  Serious: Yes (Other)
  Sender: FDA-Public Use
  Company Number: None

PATIENT
  Age: 45 Year
  Sex: Female
  Weight: 113.4 kg

DRUGS (7)
  1. BRINTELLIX [Concomitant]
     Active Substance: VORTIOXETINE HYDROBROMIDE
  2. MAGNESIUM CITRATE. [Suspect]
     Active Substance: MAGNESIUM CITRATE
     Indication: CONSTIPATION
     Dosage: DRINK  1 BOTTLE NOW
     Route: 048
     Dates: start: 20151107, end: 20151107
  3. CYCLOBENZAPRINE [Concomitant]
     Active Substance: CYCLOBENZAPRINE
  4. KEPPRA [Concomitant]
     Active Substance: LEVETIRACETAM
  5. CLONAZEPAM. [Concomitant]
     Active Substance: CLONAZEPAM
  6. VITAMIN D [Concomitant]
     Active Substance: CHOLECALCIFEROL
  7. MAGNESIUM CITRATE. [Suspect]
     Active Substance: MAGNESIUM CITRATE
     Indication: FAECALOMA
     Dosage: DRINK  1 BOTTLE NOW
     Route: 048
     Dates: start: 20151107, end: 20151107

REACTIONS (8)
  - Visual impairment [None]
  - Blindness transient [None]
  - Heart rate increased [None]
  - Blood pressure increased [None]
  - Diarrhoea [None]
  - Confusional state [None]
  - Dizziness [None]
  - Haematemesis [None]

NARRATIVE: CASE EVENT DATE: 20151107
